FAERS Safety Report 7920208 (Version 3)
Quarter: 2013Q2

REPORT INFORMATION
  Report Type: Spontaneous
  Country: IT (occurrence: IT)
  Receive Date: 20110429
  Receipt Date: 20130516
  Transmission Date: 20140414
  Serious: Yes (Hospitalization)
  Sender: FDA-Public Use
  Company Number: IT-BRISTOL-MYERS SQUIBB COMPANY-15689474

PATIENT
  Age: 88 Year
  Sex: Male

DRUGS (8)
  1. KARVEA FILM-COATED TABS 150 MG [Suspect]
     Dosage: 1 UNIT
     Route: 048
     Dates: start: 20090407
  2. MODURETIC [Interacting]
     Dosage: 1DF:5MG PLUS 50MG TABS?INT ON 7APR11
     Route: 048
     Dates: start: 20090407
  3. CARVEDILOL [Interacting]
     Dosage: INT ON 7APR11
     Route: 048
     Dates: start: 20090407
  4. CORDARONE [Interacting]
     Indication: EXTRASYSTOLES
     Dosage: INT ON 7APR11
     Route: 048
     Dates: start: 20070407
  5. ZYLORIC [Concomitant]
     Dosage: 1DF:300 UNITS NOS?SCORED TABS
     Route: 048
  6. CARDIOASPIRIN [Concomitant]
     Dosage: GASTRORESISTANT TABS?1 UNIT
     Route: 048
  7. CARDURA [Concomitant]
     Dosage: 1 UNIT
     Route: 048
  8. CASODEX [Concomitant]
     Indication: PROSTATE CANCER
     Dosage: FILM COATED ORAL TABS:1 UNIT
     Route: 048
     Dates: start: 20090407

REACTIONS (3)
  - Hyperkalaemia [Recovered/Resolved]
  - Bradycardia [Recovered/Resolved]
  - Drug interaction [Recovered/Resolved]
